FAERS Safety Report 6546037-8 (Version None)
Quarter: 2010Q1

REPORT INFORMATION
  Report Type: 
  Country: None (occurrence: None)
  Receive Date: 20100121
  Receipt Date: 20100121
  Transmission Date: 20100710
  Serious: No
  Sender: FDA-Public Use
  Company Number: None

PATIENT
  Age: 83 Year
  Sex: Male
  Weight: 75 kg

DRUGS (1)
  1. PLAVIX [Suspect]
     Indication: CATHETERISATION CARDIAC
     Dosage: 600MG ONCE IV BOLUS
     Route: 040
     Dates: start: 20091120, end: 20091120

REACTIONS (2)
  - DIPLEGIA [None]
  - SPINAL HAEMATOMA [None]
